FAERS Safety Report 23037944 (Version 1)
Quarter: 2023Q4

REPORT INFORMATION
  Report Type: Spontaneous
  Country: US (occurrence: None)
  Receive Date: 20231005
  Receipt Date: 20231005
  Transmission Date: 20240109
  Serious: No
  Sender: FDA-Public Use
  Company Number: None

PATIENT
  Age: 44 Year
  Sex: Female

DRUGS (2)
  1. BOSENTAN [Suspect]
     Active Substance: BOSENTAN
     Indication: Raynaud^s phenomenon
     Dosage: FREQUENCY : TWICE A DAY;?
     Route: 048
     Dates: start: 20230911, end: 20230925
  2. BOSENTAN [Suspect]
     Active Substance: BOSENTAN
     Indication: Gangrene

REACTIONS (2)
  - Therapy cessation [None]
  - Swelling [None]

NARRATIVE: CASE EVENT DATE: 20230925
